FAERS Safety Report 4569728-7 (Version None)
Quarter: 2005Q1

REPORT INFORMATION
  Report Type: 
  Country: None (occurrence: None)
  Receive Date: 20050131
  Receipt Date: 20050118
  Transmission Date: 20050727
  Serious: Yes (Hospitalization)
  Sender: FDA-Public Use
  Company Number: 2004106483

PATIENT
  Age: 53 Year
  Sex: Male
  Weight: 65 kg

DRUGS (7)
  1. ALDACTONE [Suspect]
     Indication: ILL-DEFINED DISORDER
     Dosage: ORAL
     Route: 048
  2. ENALAPRIL MALEATE [Suspect]
     Indication: CARDIAC FAILURE CHRONIC
     Dosage: 5 MG (5 MG, DAILY), ORAL
     Route: 048
  3. AMIODARONE HCL [Concomitant]
  4. VERAPAMIL HYDROHCLORIDE (VERAMPAMIL HYDROCHLORIDE) [Concomitant]
  5. FUROSEMIDE (FURSOSEMIDE) [Concomitant]
  6. WARFARIN SODIUM [Concomitant]
  7. DIPYRIDAMOLE [Concomitant]

REACTIONS (4)
  - ATRIOVENTRICULAR BLOCK COMPLETE [None]
  - DRUG INTERACTION [None]
  - HAEMODIALYSIS [None]
  - HYPERKALAEMIA [None]
